FAERS Safety Report 4972811-5 (Version None)
Quarter: 2006Q2

REPORT INFORMATION
  Report Type: 
  Country: None (occurrence: None)
  Receive Date: 20060414
  Receipt Date: 20060127
  Transmission Date: 20061013
  Serious: Yes (Life-Threatening, Hospitalization)
  Sender: FDA-Public Use
  Company Number: NLWYE340827JAN06

PATIENT
  Sex: Female

DRUGS (4)
  1. ENBREL [Suspect]
     Indication: SERONEGATIVE ARTHRITIS
     Route: 065
     Dates: start: 20050101, end: 20060130
  2. ENBREL [Suspect]
     Indication: PSORIATIC ARTHROPATHY
  3. MOVICOX [Concomitant]
     Dosage: UNKNOWN
     Route: 065
  4. METHOTREXATE [Concomitant]
     Route: 065
     Dates: end: 20060101

REACTIONS (6)
  - ACUTE RESPIRATORY DISTRESS SYNDROME [None]
  - BETA HAEMOLYTIC STREPTOCOCCAL INFECTION [None]
  - NECROTISING FASCIITIS [None]
  - RENAL IMPAIRMENT [None]
  - STREPTOCOCCAL SEPSIS [None]
  - TOXIC SHOCK SYNDROME STREPTOCOCCAL [None]
